FAERS Safety Report 17580014 (Version 1)
Quarter: 2020Q1

REPORT INFORMATION
  Report Type: Spontaneous
  Country: US (occurrence: US)
  Receive Date: 20200325
  Receipt Date: 20200325
  Transmission Date: 20200409
  Serious: No
  Sender: FDA-Public Use
  Company Number: US-CELGENEUS-USA-20200307256

PATIENT
  Sex: Male

DRUGS (6)
  1. OTEZLA [Suspect]
     Active Substance: APREMILAST
     Dosage: 10 MG IN AM AND 20 MG IN PM?(DAY-3)
     Route: 048
     Dates: start: 20200224
  2. OTEZLA [Suspect]
     Active Substance: APREMILAST
     Dosage: 40 MILLIGRAM (DAY-4)
     Route: 048
     Dates: start: 20200225
  3. OTEZLA [Suspect]
     Active Substance: APREMILAST
     Dosage: 20 MILLIGRAM (DAY-2)
     Route: 048
     Dates: start: 20200223
  4. OTEZLA [Suspect]
     Active Substance: APREMILAST
     Dosage: 20 MG IN AM AND 30 MG IN PM?(DAY-5)
     Route: 048
     Dates: start: 20200226
  5. OTEZLA [Suspect]
     Active Substance: APREMILAST
     Dosage: 60 MILLIGRAM
     Route: 048
     Dates: start: 202002
  6. OTEZLA [Suspect]
     Active Substance: APREMILAST
     Indication: PSORIASIS
     Dosage: 10 MILLIGRAM (DAY-1)
     Route: 048
     Dates: start: 20200222

REACTIONS (1)
  - Drug ineffective [Unknown]

NARRATIVE: CASE EVENT DATE: 2020
